FAERS Safety Report 7716225-3 (Version None)
Quarter: 2011Q3

REPORT INFORMATION
  Report Type: 
  Country: None (occurrence: None)
  Receive Date: 20110822
  Receipt Date: 20110812
  Transmission Date: 20111222
  Serious: Yes (Hospitalization, Other)
  Sender: FDA-Public Use
  Company Number: AUR-APL-2011-04650

PATIENT
  Sex: Male
  Weight: 3.07 kg

DRUGS (4)
  1. LEVOTHYROXINE SODIUM [Concomitant]
  2. SERTRALINE HYDROCHLORIDE [Suspect]
     Indication: DEPRESSION
     Dosage: (150 MG, 1 D), TRANSPLACENTAL; FROM WEEK 11 (100 MG, 1 D), TRANSPLACENTAL
     Route: 064
     Dates: start: 20100208, end: 20101112
  3. THYROXIN/IODID [Concomitant]
  4. FOLIO (FOLIC ACID) [Concomitant]

REACTIONS (6)
  - TORTICOLLIS [None]
  - MECONIUM IN AMNIOTIC FLUID [None]
  - VENTOUSE EXTRACTION [None]
  - FOETAL HEART RATE DECELERATION [None]
  - PREMATURE RUPTURE OF MEMBRANES [None]
  - MATERNAL DRUGS AFFECTING FOETUS [None]
